FAERS Safety Report 4696226-2 (Version None)
Quarter: 2005Q2

REPORT INFORMATION
  Report Type: 
  Country: None (occurrence: None)
  Receive Date: 20050621
  Receipt Date: 20050616
  Transmission Date: 20051028
  Serious: Yes (Death)
  Sender: FDA-Public Use
  Company Number: 2005UW09228

PATIENT
  Age: 78 Year
  Sex: Male

DRUGS (9)
  1. SEROQUEL [Suspect]
     Indication: DEMENTIA
     Dosage: 262.5 MG AM; 337.5 MG PM
     Route: 048
     Dates: start: 20041001
  2. SEROQUEL [Suspect]
     Indication: VASCULAR DEMENTIA
     Dosage: 262.5 MG AM; 337.5 MG PM
     Route: 048
     Dates: start: 20041001
  3. SEROQUEL [Suspect]
     Dosage: 187.5 MG AM; 225 MG PM
     Route: 048
  4. SEROQUEL [Suspect]
     Dosage: 187.5 MG AM; 225 MG PM
     Route: 048
  5. VIOXX [Concomitant]
     Indication: GOUT
     Route: 048
  6. GLYBURIDE [Concomitant]
  7. ADALAT [Concomitant]
  8. LOSEC [Concomitant]
  9. BEXTRA [Concomitant]

REACTIONS (6)
  - CEREBROVASCULAR ACCIDENT [None]
  - COMMUNICATION DISORDER [None]
  - GASTROINTESTINAL TUBE INSERTION [None]
  - GENERAL PHYSICAL HEALTH DETERIORATION [None]
  - PNEUMONIA [None]
  - URINARY INCONTINENCE [None]
